FAERS Safety Report 9785113 (Version 2)
Quarter: 2014Q1

REPORT INFORMATION
  Report Type: Spontaneous
  Country: IT (occurrence: IT)
  Receive Date: 20131227
  Receipt Date: 20140127
  Transmission Date: 20141002
  Serious: Yes (Other)
  Sender: FDA-Public Use
  Company Number: IT-ACCORD-021000

PATIENT
  Age: 77 Year
  Sex: Male

DRUGS (3)
  1. HYDROCHLOROTHIAZIDE/LISINOPRIL [Concomitant]
     Indication: HYPERTENSION
  2. CAPECITABINE [Suspect]
     Indication: RECTAL ADENOCARCINOMA
     Dosage: MAH: ROCHE
     Route: 048
     Dates: start: 20130613, end: 20130713
  3. IRINOTECAN [Suspect]
     Indication: RECTAL ADENOCARCINOMA
     Dosage: IRINOTECAN HYDROCHLORIDE TRIHYDRATE
     Route: 042
     Dates: start: 20130613, end: 20130713

REACTIONS (4)
  - Rectal haemorrhage [Unknown]
  - Anaemia [Unknown]
  - Asthenia [Unknown]
  - Diarrhoea [Unknown]
